FAERS Safety Report 11478247 (Version 2)
Quarter: 2015Q3

REPORT INFORMATION
  Report Type: Spontaneous
  Country: KR (occurrence: KR)
  Receive Date: 20150909
  Receipt Date: 20150922
  Transmission Date: 20151125
  Serious: Yes (Hospitalization, Other)
  Sender: FDA-Public Use
  Company Number: KR-MYLANLABS-2015M1030157

PATIENT

DRUGS (2)
  1. EPINEPHRINE. [Suspect]
     Active Substance: EPINEPHRINE
     Indication: PRODUCT USED FOR UNKNOWN INDICATION
     Dosage: 1MG DILUTED WITH NORMAL SALINE 10ML
     Route: 058
  2. MARCAINE [Concomitant]
     Active Substance: BUPIVACAINE HYDROCHLORIDE
     Indication: SPINAL ANAESTHESIA
     Dosage: 0.5% BUPIVACAINE 10MG
     Route: 037

REACTIONS (3)
  - Arteriospasm coronary [Recovered/Resolved]
  - Tachyarrhythmia [Recovered/Resolved]
  - Blood pressure increased [Recovered/Resolved]
